FAERS Safety Report 17939472 (Version 1)
Quarter: 2020Q2

REPORT INFORMATION
  Report Type: Report from Study
  Country: None (occurrence: CA)
  Receive Date: 20200624
  Receipt Date: 20200624
  Transmission Date: 20200714
  Serious: Yes (Other)
  Sender: FDA-Public Use
  Company Number: CA-ABBVIE-20K-028-3431940-00

PATIENT
  Age: 75 Year
  Sex: Female

DRUGS (1)
  1. RINVOQ [Suspect]
     Active Substance: UPADACITINIB
     Indication: RHEUMATOID ARTHRITIS
     Route: 048
     Dates: start: 20200317

REACTIONS (4)
  - Headache [Unknown]
  - Rhinalgia [Unknown]
  - Epistaxis [Not Recovered/Not Resolved]
  - Pyogenic granuloma [Unknown]

NARRATIVE: CASE EVENT DATE: 2020
